FAERS Safety Report 8916401 (Version 3)
Quarter: 2013Q2

REPORT INFORMATION
  Report Type: Spontaneous
  Country: US (occurrence: US)
  Receive Date: 20121120
  Receipt Date: 20130430
  Transmission Date: 20140414
  Serious: No
  Sender: FDA-Public Use
  Company Number: US-ASTRAZENECA-2012SE84741

PATIENT
  Age: 28 Year
  Sex: Female

DRUGS (2)
  1. SEROQUEL XR [Suspect]
     Route: 048
  2. SEROQUEL XR [Suspect]
     Route: 048

REACTIONS (6)
  - Insomnia [Unknown]
  - Panic attack [Unknown]
  - Anxiety [Unknown]
  - Malaise [Unknown]
  - Vomiting [Unknown]
  - Drug dose omission [Unknown]
